FAERS Safety Report 20455601 (Version 1)
Quarter: 2022Q1

REPORT INFORMATION
  Report Type: Spontaneous
  Country: US (occurrence: None)
  Receive Date: 20220210
  Receipt Date: 20220210
  Transmission Date: 20220424
  Serious: Yes (Other)
  Sender: FDA-Public Use
  Company Number: None

PATIENT
  Age: 76 Year
  Sex: Female

DRUGS (1)
  1. RITUXAN [Suspect]
     Active Substance: RITUXIMAB
     Indication: Systemic scleroderma
     Dosage: OTHER FREQUENCY : 500 MG/50ML;?
     Route: 042
     Dates: start: 20210217

REACTIONS (1)
  - Upper limb fracture [None]

NARRATIVE: CASE EVENT DATE: 20220202
